FAERS Safety Report 9505544 (Version 1)
Quarter: 2013Q1

REPORT INFORMATION
  Report Type: Spontaneous
  Country: US (occurrence: None)
  Receive Date: 20130220
  Receipt Date: 20130220
  Transmission Date: 20140127
  Serious: No
  Sender: FDA-Public Use
  Company Number: 1000039786

PATIENT
  Age: 57 Year
  Sex: Female

DRUGS (5)
  1. VIIBYRD (VILAZODONE HYDROCHLORIDE) [Suspect]
     Indication: DEPRESSION
     Dosage: 40MG (40 MG, 1 IN 1 D), ORAL
     Route: 048
     Dates: start: 2012, end: 201210
  2. OXYCODONE (OXYCODONE) (OXYCODONE) [Concomitant]
  3. FENTANYL (FENTANYL) (FENTANYL) [Concomitant]
  4. ALPRAZOLAM (ALPRAZOLAM) (ALPRAZOLAM) [Concomitant]
  5. VITAMIN B12 (VITAMIN B12) (VITAMIN B12) [Concomitant]

REACTIONS (4)
  - Drug ineffective [None]
  - Diarrhoea [None]
  - Initial insomnia [None]
  - Anxiety [None]
